FAERS Safety Report 8337622-1 (Version None)
Quarter: 2012Q2

REPORT INFORMATION
  Report Type: 
  Country: None (occurrence: None)
  Receive Date: 20120504
  Receipt Date: 20120419
  Transmission Date: 20120825
  Serious: Yes (Death)
  Sender: FDA-Public Use
  Company Number: SE-ROCHE-680373

PATIENT
  Age: 85 Year
  Sex: Male

DRUGS (2)
  1. MABTHERA [Suspect]
     Indication: ANTI-NEUTROPHIL CYTOPLASMIC ANTIBODY POSITIVE VASCULITIS
     Dosage: 375 MG/M2 X IV
     Route: 042
  2. PREDNISOLONE ACETATE [Concomitant]

REACTIONS (1)
  - SEPSIS [None]
